FAERS Safety Report 25300370 (Version 1)
Quarter: 2025Q2

REPORT INFORMATION
  Report Type: Spontaneous
  Country: ES (occurrence: ES)
  Receive Date: 20250512
  Receipt Date: 20250512
  Transmission Date: 20250716
  Serious: Yes (Death, Other)
  Sender: REGENERON
  Company Number: ES-REGENERON PHARMACEUTICALS, INC.-2025-076337

PATIENT
  Sex: Female

DRUGS (1)
  1. LIBTAYO [Suspect]
     Active Substance: CEMIPLIMAB-RWLC
     Indication: Lung neoplasm malignant

REACTIONS (2)
  - Death [Fatal]
  - Neutropenia [Unknown]
